FAERS Safety Report 9281643 (Version 1)
Quarter: 2013Q2

REPORT INFORMATION
  Report Type: Spontaneous
  Country: JP (occurrence: JP)
  Receive Date: 20130509
  Receipt Date: 20130509
  Transmission Date: 20140414
  Serious: Yes (Hospitalization)
  Sender: FDA-Public Use
  Company Number: JP-009507513-1203USA03081

PATIENT
  Age: 84 Year
  Sex: Female
  Weight: 35 kg

DRUGS (7)
  1. SULINDAC [Suspect]
     Indication: CHONDROCALCINOSIS PYROPHOSPHATE
     Dosage: UNK
     Route: 048
     Dates: start: 2011
  2. RABEPRAZOLE SODIUM [Concomitant]
     Route: 048
  3. CANDESARTAN CILEXETIL [Concomitant]
     Route: 048
  4. AMLODIPINE BESYLATE [Concomitant]
     Route: 048
  5. LIMAPROST ALFADEX [Concomitant]
     Route: 048
  6. PREGABALIN [Concomitant]
     Route: 048
  7. LOXOPROFEN SODIUM [Concomitant]
     Indication: PAIN
     Dosage: UNK, PRN

REACTIONS (4)
  - Portal venous gas [Unknown]
  - Renal impairment [Unknown]
  - Enteritis [Unknown]
  - Colitis ischaemic [Recovering/Resolving]
